FAERS Safety Report 11431551 (Version 2)
Quarter: 2015Q3

REPORT INFORMATION
  Report Type: Spontaneous
  Country: DE (occurrence: DE)
  Receive Date: 20150828
  Receipt Date: 20150922
  Transmission Date: 20151125
  Serious: Yes (Other)
  Sender: FDA-Public Use
  Company Number: DE-PFIZER INC-2015281458

PATIENT
  Age: 27 Year
  Sex: Male

DRUGS (1)
  1. ZOLOFT [Suspect]
     Active Substance: SERTRALINE HYDROCHLORIDE
     Indication: OBSESSIVE-COMPULSIVE DISORDER
     Dosage: 200 MG, DAILY
     Dates: start: 2005, end: 2014

REACTIONS (8)
  - Erectile dysfunction [Unknown]
  - Suicidal ideation [Unknown]
  - Seizure [Unknown]
  - Photosensitivity reaction [Not Recovered/Not Resolved]
  - Tic [Not Recovered/Not Resolved]
  - Nerve injury [Unknown]
  - Walking disability [Unknown]
  - Impaired driving ability [Unknown]

NARRATIVE: CASE EVENT DATE: 2013
